FAERS Safety Report 24437436 (Version 2)
Quarter: 2024Q4

REPORT INFORMATION
  Report Type: Spontaneous
  Country: IT (occurrence: None)
  Receive Date: 20241015
  Receipt Date: 20241107
  Transmission Date: 20250114
  Serious: Yes (Hospitalization)
  Sender: ISTITUTO BICHIMICO ITALIANO GIOVANNI LORENZINI (IBIGEN)
  Company Number: IT-MLMSERVICE-20240919-PI196172-00263-1

PATIENT
  Age: 53 Year
  Sex: Male

DRUGS (2)
  1. PIPERACILLIN SODIUM\TAZOBACTAM SODIUM [Suspect]
     Active Substance: PIPERACILLIN SODIUM\TAZOBACTAM SODIUM
     Indication: Evidence based treatment
     Dosage: UNDERWENT TWO COURSES OF THERAPY ()
     Dates: start: 20220613, end: 20220622
  2. PIPERACILLIN SODIUM\TAZOBACTAM SODIUM [Suspect]
     Active Substance: PIPERACILLIN SODIUM\TAZOBACTAM SODIUM
     Indication: Evidence based treatment
     Dosage: UNDERWENT TWO COURSES OF THERAPY ()
     Dates: start: 2022, end: 2022

REACTIONS (2)
  - Candida infection [Recovered/Resolved]
  - Haematological infection [Recovered/Resolved]

NARRATIVE: CASE EVENT DATE: 20220101
